FAERS Safety Report 12687633 (Version 2)
Quarter: 2016Q4

REPORT INFORMATION
  Report Type: Report from Study
  Country: US (occurrence: US)
  Receive Date: 20160826
  Receipt Date: 20161005
  Transmission Date: 20170207
  Serious: Yes (Other)
  Sender: FDA-Public Use
  Company Number: US-AMGEN-USASL2016111098

PATIENT
  Age: 78 Year
  Sex: Female
  Weight: 55.78 kg

DRUGS (1)
  1. PROCRIT [Suspect]
     Active Substance: ERYTHROPOIETIN
     Indication: PRODUCT USED FOR UNKNOWN INDICATION
     Dosage: 40,000 K, UNK
     Route: 065

REACTIONS (10)
  - Diabetic nephropathy [Unknown]
  - End stage renal disease [Unknown]
  - Cardiac failure congestive [Unknown]
  - Nephrosclerosis [Recovering/Resolving]
  - Anaemia [Unknown]
  - Arteriosclerosis [Unknown]
  - Arteriovenous fistula [Unknown]
  - Vitamin D deficiency [Unknown]
  - Proteinuria [Unknown]
  - Blood pressure abnormal [Unknown]

NARRATIVE: CASE EVENT DATE: 20160805
